FAERS Safety Report 20071752 (Version 7)
Quarter: 2022Q3

REPORT INFORMATION
  Report Type: Report from Study
  Country: US (occurrence: US)
  Receive Date: 20211116
  Receipt Date: 20220922
  Transmission Date: 20221026
  Serious: Yes (Other)
  Sender: FDA-Public Use
  Company Number: US-NOVARTISTESTPH-NVSC2021US260513

PATIENT
  Sex: Female
  Weight: 84.82 kg

DRUGS (7)
  1. TREPROSTINIL [Suspect]
     Active Substance: TREPROSTINIL
     Indication: Pulmonary arterial hypertension
     Dosage: UNK, CONT (78 NG/KG/MIN), (2.5 MG/ML)
     Route: 042
     Dates: start: 20190820
  2. TREPROSTINIL [Suspect]
     Active Substance: TREPROSTINIL
     Dosage: UNK, CONT (78 NG/KG/MIN), (2.5 MG/ML)
     Route: 042
  3. TREPROSTINIL [Suspect]
     Active Substance: TREPROSTINIL
     Dosage: UNK, CONT (78 NG/KG/MIN), (2.5 MG/ML)
     Route: 042
  4. TREPROSTINIL [Suspect]
     Active Substance: TREPROSTINIL
     Dosage: UNK UNK, CONT (78 NG/KG/MIN), (1 MG/ML)
     Route: 042
  5. TREPROSTINIL [Suspect]
     Active Substance: TREPROSTINIL
     Dosage: UNK UNK, CONT  (78 NG/KG/MIN), (STRENGTH: 1 MG/ML)
     Route: 042
  6. AMBRISENTAN [Concomitant]
     Active Substance: AMBRISENTAN
     Indication: Product used for unknown indication
     Dosage: UNK
     Route: 065
  7. REMODULIN [Concomitant]
     Active Substance: TREPROSTINIL
     Indication: Product used for unknown indication
     Dosage: UNK
     Route: 065

REACTIONS (8)
  - Vascular device infection [Unknown]
  - Vascular access site erythema [Unknown]
  - Vascular access site discharge [Unknown]
  - Foot fracture [Not Recovered/Not Resolved]
  - COVID-19 [Unknown]
  - Infusion site irritation [Unknown]
  - Infusion site pruritus [Unknown]
  - Infusion site erythema [Unknown]
